FAERS Safety Report 8822562 (Version 3)
Quarter: 2012Q4

REPORT INFORMATION
  Report Type: 
  Country: JP (occurrence: JP)
  Receive Date: 20121003
  Receipt Date: 20121109
  Transmission Date: 20130627
  Serious: Yes (Death)
  Sender: FDA-Public Use
  Company Number: JP-SANOFI-AVENTIS-2012SA071518

PATIENT
  Age: 63 Year
  Sex: Female
  Weight: 41 kg

DRUGS (3)
  1. TAXOTERE [Suspect]
     Indication: HEAD AND NECK CANCER
     Dosage: dose: 80 mg/body/day
     Route: 042
     Dates: start: 20120730
  2. CARBOPLATIN [Concomitant]
     Indication: HEAD AND NECK CANCER
     Route: 042
     Dates: start: 20120730
  3. DEXAMETHASONE SODIUM PHOSPHATE [Concomitant]
     Route: 042
     Dates: start: 20120730

REACTIONS (6)
  - Bone marrow failure [Fatal]
  - Infection [Fatal]
  - Endotoxic shock [Fatal]
  - Depressed level of consciousness [Fatal]
  - Feeling abnormal [Fatal]
  - Blood pressure decreased [Fatal]
